FAERS Safety Report 9339838 (Version 1)
Quarter: 2013Q2

REPORT INFORMATION
  Report Type: Spontaneous
  Country: FR (occurrence: FR)
  Receive Date: 20130610
  Receipt Date: 20130610
  Transmission Date: 20140414
  Serious: Yes (Other)
  Sender: FDA-Public Use
  Company Number: FR-BAYER-2013-067813

PATIENT
  Age: 47 Year
  Sex: Male

DRUGS (1)
  1. CIPROFLOXACIN [Suspect]
     Indication: PROPHYLAXIS
     Dosage: DAILY DOSE 1 G
     Route: 048

REACTIONS (3)
  - Pathogen resistance [None]
  - Aeromonas test positive [Recovered/Resolved]
  - Skin flap necrosis [Recovered/Resolved]
